FAERS Safety Report 8905119 (Version 1)
Quarter: 2012Q4

REPORT INFORMATION
  Report Type: 
  Country: US (occurrence: US)
  Receive Date: 20121113
  Receipt Date: 20121113
  Transmission Date: 20130627
  Serious: No
  Sender: FDA-Public Use
  Company Number: US-009507513-1211USA000204

PATIENT
  Sex: Female

DRUGS (1)
  1. IMPLANON [Suspect]
     Indication: CONTRACEPTION
     Dosage: 68 mg, 3 year implant
     Route: 059
     Dates: start: 201210

REACTIONS (4)
  - Implant site swelling [Unknown]
  - Implant site erythema [Unknown]
  - Implant site pruritus [Unknown]
  - Implant site swelling [Unknown]
